FAERS Safety Report 8803558 (Version 1)
Quarter: 2012Q4

REPORT INFORMATION
  Report Type: 
  Country: BR (occurrence: BR)
  Receive Date: 20120924
  Receipt Date: 20120924
  Transmission Date: 20130627
  Serious: Yes (Other)
  Sender: FDA-Public Use
  Company Number: PHHY2012BR081216

PATIENT
  Sex: Male
  Weight: 38 kg

DRUGS (7)
  1. FORASEQ [Suspect]
     Indication: ASTHMA
     Dosage: 1 DF, BID
  2. CINNARIZINE [Concomitant]
     Indication: LABYRINTHITIS
     Dosage: 2 DF, daily
     Route: 048
  3. OMEPRAZOLE [Concomitant]
     Indication: DYSPEPSIA
     Dosage: 1 DF, daily
     Route: 048
  4. ONDANSETRON HYDROCHLORIDE [Concomitant]
     Indication: VOMITING
     Dosage: 2 DF, per day
     Route: 048
  5. TYLEX (PARACETAMOL/CODEINE PHOSPHATE) [Concomitant]
     Indication: PAIN
     Dosage: 4 DF, PRN
     Route: 048
  6. TRAMADOL [Concomitant]
     Indication: PAIN
     Dosage: 1 DF, Q8H
     Route: 048
  7. VITAMINS NOS [Concomitant]
     Indication: MEDICAL DIET
     Dosage: 2 DF, per day
     Route: 048

REACTIONS (1)
  - Bone cancer [Not Recovered/Not Resolved]
